FAERS Safety Report 6781921-1 (Version None)
Quarter: 2010Q2

REPORT INFORMATION
  Report Type: 
  Country: None (occurrence: None)
  Receive Date: 20100621
  Receipt Date: 20100615
  Transmission Date: 20101027
  Serious: Yes (Death, Hospitalization, Other)
  Sender: FDA-Public Use
  Company Number: US-ASTRAZENECA-2010SE28037

PATIENT
  Age: 14644 Day
  Sex: Male

DRUGS (3)
  1. SEROQUEL [Suspect]
     Indication: BIPOLAR I DISORDER
     Route: 048
     Dates: start: 20050101
  2. SEROQUEL [Suspect]
     Dosage: 9 DOSES OF 350 MG
     Route: 048
     Dates: start: 20100122
  3. DEPAKOTE [Concomitant]
     Dosage: 9 DOSES OF 1500 MG

REACTIONS (4)
  - COMPLETED SUICIDE [None]
  - HYPOREFLEXIA [None]
  - OVERDOSE [None]
  - SUICIDE ATTEMPT [None]
